FAERS Safety Report 5075454-0 (Version None)
Quarter: 2006Q3

REPORT INFORMATION
  Report Type: 
  Country: None (occurrence: None)
  Receive Date: 20060714
  Receipt Date: 20060316
  Transmission Date: 20061208
  Serious: No
  Sender: FDA-Public Use
  Company Number: 2006SP001257

PATIENT
  Age: 63 Year
  Sex: Female

DRUGS (7)
  1. LUNESTA [Suspect]
     Indication: INSOMNIA
     Dosage: SEE IMAGE
     Route: 048
     Dates: start: 20050921, end: 20060101
  2. LUNESTA [Suspect]
     Indication: INSOMNIA
     Dosage: SEE IMAGE
     Route: 048
     Dates: start: 20050921, end: 20060101
  3. LEVOTHROID [Concomitant]
  4. EFFEXOR [Concomitant]
  5. METFORMIN [Concomitant]
  6. ATORVASTATIN CALCIUM [Concomitant]
  7. ZETIA [Concomitant]

REACTIONS (2)
  - DYSGEUSIA [None]
  - INSOMNIA [None]
